FAERS Safety Report 26136918 (Version 1)
Quarter: 2025Q4

REPORT INFORMATION
  Report Type: Other
  Country: US (occurrence: US)
  Receive Date: 20251209
  Receipt Date: 20251209
  Transmission Date: 20260118
  Serious: Yes (Hospitalization, Other)
  Sender: HLS THERAPEUTICS
  Company Number: US-HLS-202500418

PATIENT
  Age: 30 Year
  Sex: Male

DRUGS (5)
  1. CLOZAPINE [Suspect]
     Active Substance: CLOZAPINE
     Indication: Schizophrenia
     Dosage: CLOZAPINE WAS RE-INTRODUCED AND GRADUALLY INCREASED TO 200MG WITH LORAZEPAM IV.
     Route: 065
  2. CLOZAPINE [Suspect]
     Active Substance: CLOZAPINE
     Indication: Catatonia
     Dosage: CLOZAPINE WAS RE-INTRODUCED AND GRADUALLY INCREASED TO 200MG WITH LORAZEPAM IV.
     Route: 065
  3. CLOZAPINE [Suspect]
     Active Substance: CLOZAPINE
     Indication: Schizophrenia
     Dosage: 300 MG NIGHTLY
     Route: 048
  4. CLOZAPINE [Suspect]
     Active Substance: CLOZAPINE
     Indication: Catatonia
     Dosage: 300 MG NIGHTLY
     Route: 048
  5. LORAZEPAM [Suspect]
     Active Substance: LORAZEPAM
     Indication: Catatonia
     Route: 042

REACTIONS (4)
  - Hyperhidrosis [Unknown]
  - Haemodynamic instability [Unknown]
  - Irregular breathing [Unknown]
  - Catatonia [Unknown]
